FAERS Safety Report 12896243 (Version 1)
Quarter: 2016Q4

REPORT INFORMATION
  Report Type: Spontaneous
  Country: US (occurrence: US)
  Receive Date: 20161031
  Receipt Date: 20161031
  Transmission Date: 20170207
  Serious: No
  Sender: FDA-Public Use
  Company Number: US-JAZZ-2016-US-016162

PATIENT
  Sex: Female

DRUGS (19)
  1. ADDERALL [Concomitant]
     Active Substance: AMPHETAMINE ASPARTATE\AMPHETAMINE SULFATE\DEXTROAMPHETAMINE SACCHARATE\DEXTROAMPHETAMINE SULFATE
  2. IBUPROFEN. [Concomitant]
     Active Substance: IBUPROFEN
  3. MIRALAX [Concomitant]
     Active Substance: POLYETHYLENE GLYCOL 3350
  4. ZOLPIDEM TARTRATE. [Concomitant]
     Active Substance: ZOLPIDEM TARTRATE
  5. AMITIZA [Concomitant]
     Active Substance: LUBIPROSTONE
  6. LEXAPRO [Concomitant]
     Active Substance: ESCITALOPRAM OXALATE
  7. PRENATAL [Concomitant]
     Active Substance: VITAMINS
  8. XYREM [Suspect]
     Active Substance: SODIUM OXYBATE
     Dosage: DOSE ADJUSTMENTS
     Route: 048
     Dates: start: 201606, end: 201606
  9. LORAZEPAM. [Concomitant]
     Active Substance: LORAZEPAM
  10. ROPINIROLE. [Concomitant]
     Active Substance: ROPINIROLE
  11. PROAIR HFA [Concomitant]
     Active Substance: ALBUTEROL SULFATE
  12. BENZONATATE. [Concomitant]
     Active Substance: BENZONATATE
  13. XYREM [Suspect]
     Active Substance: SODIUM OXYBATE
     Dosage: 3 G, BID
     Route: 048
     Dates: start: 201606
  14. XYREM [Suspect]
     Active Substance: SODIUM OXYBATE
     Indication: NARCOLEPSY
     Dosage: 2.25 G, BID
     Route: 048
     Dates: start: 201606, end: 201606
  15. OMEPRAZOLE. [Concomitant]
     Active Substance: OMEPRAZOLE
  16. MAGNESIUM OXIDE. [Concomitant]
     Active Substance: MAGNESIUM OXIDE
  17. ONDANSETRON [Concomitant]
     Active Substance: ONDANSETRON
  18. POTASSIUM [Concomitant]
     Active Substance: POTASSIUM
  19. TOPIRAMATE. [Concomitant]
     Active Substance: TOPIRAMATE

REACTIONS (2)
  - Pain in extremity [Not Recovered/Not Resolved]
  - Muscle spasms [Not Recovered/Not Resolved]

NARRATIVE: CASE EVENT DATE: 2016
